FAERS Safety Report 5407191-4 (Version None)
Quarter: 2007Q3

REPORT INFORMATION
  Report Type: 
  Country: None (occurrence: None)
  Receive Date: 20070803
  Receipt Date: 20070723
  Transmission Date: 20080115
  Serious: Yes (Other)
  Sender: FDA-Public Use
  Company Number: 2007BI010280

PATIENT
  Age: 61 Year
  Sex: Female

DRUGS (9)
  1. NATALIZUMAB [Suspect]
     Indication: MULTIPLE SCLEROSIS
     Dosage: 300 MG; QM; IV
     Route: 042
     Dates: start: 20070309, end: 20070309
  2. TEGRETOL [Concomitant]
  3. ADDERALL 10 [Concomitant]
  4. KLONOPIN [Concomitant]
  5. COZAAR [Concomitant]
  6. PROZAC [Concomitant]
  7. LIDODERM [Concomitant]
  8. BACLOFEN [Concomitant]
  9. LYRICA [Concomitant]

REACTIONS (1)
  - CHRONIC LYMPHOCYTIC LEUKAEMIA [None]
